FAERS Safety Report 9308238 (Version 2)
Quarter: 2013Q2

REPORT INFORMATION
  Report Type: Spontaneous
  Country: US (occurrence: US)
  Receive Date: 20130524
  Receipt Date: 20130528
  Transmission Date: 20140414
  Serious: Yes (Death)
  Sender: FDA-Public Use
  Company Number: US-PFIZER INC-2013158385

PATIENT
  Age: 57 Year
  Sex: Male

DRUGS (2)
  1. PHENYTOIN [Suspect]
     Indication: EPILEPSY
     Dosage: UNK
  2. VALPROIC ACID [Suspect]
     Indication: EPILEPSY
     Dosage: UNK

REACTIONS (1)
  - Epilepsy [Fatal]
